FAERS Safety Report 9782585 (Version 1)
Quarter: 2013Q4

REPORT INFORMATION
  Report Type: Spontaneous
  Country: PT (occurrence: None)
  Receive Date: 20131220
  Receipt Date: 20131220
  Transmission Date: 20140711
  Serious: Yes (Hospitalization, Other)
  Sender: FDA-Public Use
  Company Number: 2013P1021997

PATIENT
  Age: 43 Year
  Sex: Male

DRUGS (8)
  1. LITHIUM [Suspect]
     Indication: BIPOLAR DISORDER
  2. OLANZAPINE [Concomitant]
  3. VALPROATE [Concomitant]
  4. PROMETHAZINE [Concomitant]
  5. HALOPERIDOL [Concomitant]
  6. CYAMEMAZINE [Concomitant]
  7. TIAPRIDE [Concomitant]
  8. DIAZEPAM [Concomitant]

REACTIONS (9)
  - Toxicity to various agents [None]
  - Diabetes insipidus [None]
  - Pneumonia [None]
  - Coma [None]
  - Dehydration [None]
  - Renal failure acute [None]
  - Inflammatory marker increased [None]
  - Hypernatraemia [None]
  - Antipsychotic drug level above therapeutic [None]
